FAERS Safety Report 4740013-3 (Version None)
Quarter: 2005Q3

REPORT INFORMATION
  Report Type: 
  Country: None (occurrence: None)
  Receive Date: 20050810
  Receipt Date: 20040109
  Transmission Date: 20060218
  Serious: No
  Sender: FDA-Public Use
  Company Number: US-GLAXOSMITHKLINE-A0493714A

PATIENT
  Age: 25 Year
  Sex: Female
  Weight: 52.7 kg

DRUGS (1)
  1. PAXIL [Suspect]
     Indication: ANXIETY
     Dosage: 40MG PER DAY
     Route: 048
     Dates: start: 20011024, end: 20030101

REACTIONS (3)
  - DIZZINESS [None]
  - DRUG WITHDRAWAL SYNDROME [None]
  - HEADACHE [None]
